FAERS Safety Report 25312466 (Version 2)
Quarter: 2025Q2

REPORT INFORMATION
  Report Type: Spontaneous
  Country: US (occurrence: US)
  Receive Date: 20250514
  Receipt Date: 20250520
  Transmission Date: 20250716
  Serious: No
  Sender: LUPIN
  Company Number: US-LUPIN PHARMACEUTICALS INC.-2025-04017

PATIENT
  Age: 24 Year
  Weight: 63.492 kg

DRUGS (2)
  1. TURQOZ [Suspect]
     Active Substance: ETHINYL ESTRADIOL\NORGESTREL
     Indication: Heavy menstrual bleeding
  2. HISTAMINE [Concomitant]
     Active Substance: HISTAMINE
     Indication: Product used for unknown indication
     Dosage: UNK, QD
     Route: 065

REACTIONS (3)
  - Condition aggravated [Unknown]
  - Drug ineffective [Unknown]
  - Product quality issue [Unknown]
